FAERS Safety Report 5223832-9 (Version None)
Quarter: 2007Q1

REPORT INFORMATION
  Report Type: 
  Country: None (occurrence: None)
  Receive Date: 20070130
  Receipt Date: 20060315
  Transmission Date: 20070707
  Serious: No
  Sender: FDA-Public Use
  Company Number: US-BRISTOL-MYERS SQUIBB COMPANY-13316088

PATIENT
  Sex: Female
  Weight: 19 kg

DRUGS (1)
  1. CEFZIL [Suspect]
     Indication: TONSILLITIS
     Dosage: DOSAGE FORM-TEASPOON
     Route: 048
     Dates: start: 20060315

REACTIONS (1)
  - TONGUE DISCOLOURATION [None]
